FAERS Safety Report 21499097 (Version 1)
Quarter: 2022Q4

REPORT INFORMATION
  Report Type: Spontaneous
  Country: US (occurrence: None)
  Receive Date: 20221022
  Receipt Date: 20221022
  Transmission Date: 20230113
  Serious: Yes (Other)
  Sender: FDA-Public Use
  Company Number: None

PATIENT
  Age: 79 Year
  Sex: Female
  Weight: 58.5 kg

DRUGS (12)
  1. NP THYROID [Suspect]
     Active Substance: LEVOTHYROXINE\LIOTHYRONINE
     Indication: Hypothyroidism
     Dosage: OTHER QUANTITY : 1 TABLET(S);?
     Route: 048
  2. ENALAPRIL [Concomitant]
     Active Substance: ENALAPRIL
  3. LEVOTHYROXINE [Concomitant]
     Active Substance: LEVOTHYROXINE
  4. EFFEXOR [Concomitant]
     Active Substance: VENLAFAXINE HYDROCHLORIDE
  5. VITAMIN D NOS [Concomitant]
     Active Substance: VITAMIN D NOS
  6. BIOTIN [Concomitant]
     Active Substance: BIOTIN
  7. TYLENOL [Concomitant]
     Active Substance: ACETAMINOPHEN
  8. COLACE [Concomitant]
     Active Substance: DOCUSATE SODIUM
  9. FISH OIL [Concomitant]
     Active Substance: FISH OIL
  10. VITAMINS NOS [Concomitant]
     Active Substance: VITAMINS
  11. CBD SALVE [Concomitant]
  12. ADVIL [Concomitant]
     Active Substance: IBUPROFEN

REACTIONS (10)
  - Headache [None]
  - Feeling hot [None]
  - Nervousness [None]
  - Decreased appetite [None]
  - Insomnia [None]
  - Illness [None]
  - Blood thyroid stimulating hormone increased [None]
  - Constipation [None]
  - Hyperthyroidism [None]
  - Hypothyroidism [None]

NARRATIVE: CASE EVENT DATE: 20220819
